FAERS Safety Report 5525230-7 (Version None)
Quarter: 2007Q4

REPORT INFORMATION
  Report Type: 
  Country: None (occurrence: None)
  Receive Date: 20071126
  Receipt Date: 20071113
  Transmission Date: 20080405
  Serious: Yes (Other)
  Sender: FDA-Public Use
  Company Number: FI-ROCHE-532764

PATIENT

DRUGS (3)
  1. ISOTRETINOIN [Suspect]
     Indication: MYELODYSPLASTIC SYNDROME
     Route: 065
  2. DEPRAKINE [Suspect]
     Indication: MYELODYSPLASTIC SYNDROME
     Dosage: DOSE ESCALATION WAS PREFORMED DURING THE FIRST 2 WEEKS TO ACHIEVE THE SERUM CONCENTRATION OF 500-70+
     Route: 048
  3. ETALPHA [Suspect]
     Indication: MYELODYSPLASTIC SYNDROME
     Route: 065

REACTIONS (1)
  - PNEUMONITIS [None]
